FAERS Safety Report 5659647-7 (Version None)
Quarter: 2008Q1

REPORT INFORMATION
  Report Type: 
  Country: None (occurrence: None)
  Receive Date: 20080310
  Receipt Date: 20080310
  Transmission Date: 20080703
  Serious: Yes (Other)
  Sender: FDA-Public Use
  Company Number: None

PATIENT
  Age: 76 Year
  Sex: Female
  Weight: 52.1637 kg

DRUGS (2)
  1. LEVAQUIN [Suspect]
     Indication: CYSTOSCOPY
     Dosage: 500MG IVPB X1
     Route: 042
     Dates: start: 20080306
  2. LEVAQUIN [Suspect]
     Indication: HAEMATURIA
     Dosage: 500MG IVPB X1
     Route: 042
     Dates: start: 20080306

REACTIONS (1)
  - ERYTHEMA [None]
